FAERS Safety Report 24714218 (Version 1)
Quarter: 2024Q4

REPORT INFORMATION
  Report Type: Spontaneous
  Country: US (occurrence: US)
  Receive Date: 20241209
  Receipt Date: 20241209
  Transmission Date: 20250115
  Serious: No
  Sender: INCYTE
  Company Number: US-EVENT-000589

PATIENT

DRUGS (1)
  1. OPZELURA [Suspect]
     Active Substance: RUXOLITINIB PHOSPHATE
     Indication: Dermatitis atopic
     Dosage: APPLY A THIN LAYER TO RASH ON GROIN/BUTTOCKS TWICE DAILY UNTIL RESOLVED THEN AS NEEDED
     Route: 061
     Dates: start: 202410

REACTIONS (1)
  - Urinary tract infection [Unknown]

NARRATIVE: CASE EVENT DATE: 20241101
